FAERS Safety Report 5936089-8 (Version None)
Quarter: 2008Q4

REPORT INFORMATION
  Report Type: 
  Country: None (occurrence: None)
  Receive Date: 20081030
  Receipt Date: 20081022
  Transmission Date: 20090506
  Serious: Yes (Other)
  Sender: FDA-Public Use
  Company Number: PHHY2008BR25636

PATIENT
  Sex: Female
  Weight: 50 kg

DRUGS (4)
  1. CODATEN [Suspect]
     Indication: FIBROMYALGIA
     Dosage: 1 DF, Q12H
     Route: 048
     Dates: start: 20081002
  2. CODATEN [Suspect]
     Indication: PAIN
  3. AMITRIPTILINA [Concomitant]
     Indication: FIBROMYALGIA
     Dosage: 1 TAB/DAY
     Route: 048
  4. DOLAMIN FLEX [Concomitant]
     Indication: FIBROMYALGIA
     Dosage: 2 TAB/DAY
     Route: 048

REACTIONS (2)
  - PYREXIA [None]
  - URINARY TRACT INFECTION [None]
